FAERS Safety Report 8073168-6 (Version None)
Quarter: 2012Q1

REPORT INFORMATION
  Report Type: 
  Country: None (occurrence: None)
  Receive Date: 20120126
  Receipt Date: 20120113
  Transmission Date: 20120608
  Serious: Yes (Hospitalization, Other)
  Sender: FDA-Public Use
  Company Number: US-ELI_LILLY_AND_COMPANY-US201107007680

PATIENT
  Sex: Male

DRUGS (11)
  1. PREDNISONE TAB [Concomitant]
     Dosage: 20 MG, EACH MORNING
  2. CYMBALTA [Suspect]
     Indication: BIPOLAR DISORDER
     Dosage: 30 MG, QD
     Dates: start: 20110101
  3. AMBIEN [Concomitant]
  4. VALIUM [Concomitant]
  5. FORTEO [Suspect]
     Dosage: 20 UG, QD
     Dates: start: 20100701
  6. FUROSEMIDE [Concomitant]
  7. METFORMIN HCL [Concomitant]
  8. FORTEO [Suspect]
     Indication: OSTEOPOROSIS
     Dosage: 20 UG, QD
  9. LISINOPRIL [Concomitant]
     Indication: BLOOD PRESSURE
  10. SIMCOR [Concomitant]
  11. NEURONTIN [Concomitant]

REACTIONS (6)
  - HYPOTENSION [None]
  - JOINT INJURY [None]
  - CHEST PAIN [None]
  - FALL [None]
  - JOINT DISLOCATION [None]
  - ARTHROPATHY [None]
